FAERS Safety Report 8187915-6 (Version None)
Quarter: 2012Q1

REPORT INFORMATION
  Report Type: 
  Country: None (occurrence: None)
  Receive Date: 20120306
  Receipt Date: 20120222
  Transmission Date: 20120608
  Serious: Yes (Other)
  Sender: FDA-Public Use
  Company Number: CA-GLAXOSMITHKLINE-A0966894A

PATIENT
  Sex: Female
  Weight: 63.7 kg

DRUGS (7)
  1. REACTINE (CETIRIZINE HYDROCHLORIDE) [Concomitant]
  2. ATIVAN [Concomitant]
     Indication: ANXIETY
  3. SYNTHROID [Concomitant]
     Indication: HYPOTHYROIDISM
  4. NORVASC [Concomitant]
     Indication: HYPERTENSION
  5. ADVAIR DISKUS 100/50 [Suspect]
     Indication: COUGH
     Dosage: 2PUFF TWICE PER DAY
     Route: 055
     Dates: start: 20120216, end: 20120216
  6. FLOVENT [Suspect]
     Indication: PRODUCT USED FOR UNKNOWN INDICATION
     Route: 065
     Dates: start: 20120131
  7. CELEXA [Concomitant]
     Indication: DEPRESSION

REACTIONS (10)
  - OCULAR HYPERAEMIA [None]
  - BLOOD PRESSURE INCREASED [None]
  - EYE SWELLING [None]
  - SWELLING FACE [None]
  - NONSPECIFIC REACTION [None]
  - RASH [None]
  - DRUG INEFFECTIVE [None]
  - ERYTHEMA [None]
  - EYE PRURITUS [None]
  - HEADACHE [None]
